FAERS Safety Report 10876853 (Version 1)
Quarter: 2015Q1

REPORT INFORMATION
  Report Type: Spontaneous
  Country: US (occurrence: US)
  Receive Date: 20150302
  Receipt Date: 20150302
  Transmission Date: 20150721
  Serious: No
  Sender: FDA-Public Use
  Company Number: US-BIOGENIDEC-2015BI016165

PATIENT
  Age: 65 Year
  Sex: Female

DRUGS (9)
  1. ACIPHEX [Concomitant]
     Active Substance: RABEPRAZOLE SODIUM
  2. CYMBALTA [Concomitant]
     Active Substance: DULOXETINE HYDROCHLORIDE
  3. PATANOL [Concomitant]
     Active Substance: OLOPATADINE HYDROCHLORIDE
  4. ASTELIN [Concomitant]
     Active Substance: AZELASTINE HYDROCHLORIDE
  5. NASACORT AQ [Concomitant]
     Active Substance: TRIAMCINOLONE ACETONIDE
  6. ALREX [Concomitant]
     Active Substance: LOTEPREDNOL ETABONATE
  7. METOCLOPRAMIDE HCL [Concomitant]
     Active Substance: METOCLOPRAMIDE HYDROCHLORIDE
  8. ZOLPIDEM TARTRATE. [Concomitant]
     Active Substance: ZOLPIDEM TARTRATE
  9. TECFIDERA [Suspect]
     Active Substance: DIMETHYL FUMARATE
     Indication: MULTIPLE SCLEROSIS
     Route: 048

REACTIONS (1)
  - Alopecia [Unknown]
